FAERS Safety Report 19969508 (Version 1)
Quarter: 2021Q4

REPORT INFORMATION
  Report Type: Spontaneous
  Country: JP (occurrence: JP)
  Receive Date: 20211019
  Receipt Date: 20211019
  Transmission Date: 20220303
  Serious: Yes (Other)
  Sender: FDA-Public Use
  Company Number: JP-PFIZER INC-202101326677

PATIENT
  Sex: Female

DRUGS (2)
  1. MEDROL [Suspect]
     Active Substance: METHYLPREDNISOLONE
     Dosage: 4 MG
     Route: 048
  2. MEDROL [Suspect]
     Active Substance: METHYLPREDNISOLONE
     Dosage: 2 MG
     Route: 048

REACTIONS (16)
  - Cataract [Unknown]
  - Neoplasm malignant [Unknown]
  - Congenital cystic kidney disease [Unknown]
  - Osteonecrosis [Unknown]
  - Herpes zoster [Unknown]
  - Pain [Unknown]
  - Back pain [Unknown]
  - Osteoporosis [Unknown]
  - Abdominal pain [Unknown]
  - Arthropathy [Unknown]
  - Muscular weakness [Unknown]
  - Pelvic pain [Unknown]
  - Irritable bowel syndrome [Unknown]
  - Constipation [Unknown]
  - Headache [Unknown]
  - Myalgia [Unknown]
